FAERS Safety Report 24442846 (Version 1)
Quarter: 2024Q4

REPORT INFORMATION
  Report Type: Spontaneous
  Country: CN (occurrence: CN)
  Receive Date: 20241016
  Receipt Date: 20241016
  Transmission Date: 20250114
  Serious: Yes (Other)
  Sender: AMGEN
  Company Number: CN-AMGEN-CHNSP2024201846

PATIENT
  Age: 65 Year
  Sex: Male
  Weight: 75 kg

DRUGS (2)
  1. CARFILZOMIB [Suspect]
     Active Substance: CARFILZOMIB
     Indication: Neoplasm
     Dosage: 53 MILLIGRAM, BID (TWICE A DAY)
     Route: 040
     Dates: start: 20240903
  2. CARFILZOMIB [Suspect]
     Active Substance: CARFILZOMIB
     Dosage: UNK (DOSE WAS REDUCED)
     Route: 040
     Dates: start: 202409, end: 20240918

REACTIONS (3)
  - Arrhythmia [Recovering/Resolving]
  - Supraventricular extrasystoles [Recovering/Resolving]
  - Bundle branch block left [Recovering/Resolving]

NARRATIVE: CASE EVENT DATE: 20240903
